FAERS Safety Report 7543393-9 (Version None)
Quarter: 2011Q2

REPORT INFORMATION
  Report Type: 
  Country: None (occurrence: None)
  Receive Date: 20110613
  Receipt Date: 20110606
  Transmission Date: 20111010
  Serious: Yes (Other)
  Sender: FDA-Public Use
  Company Number: US-US-EMD SERONO, INC.-7048051

PATIENT
  Sex: Female
  Weight: 54 kg

DRUGS (3)
  1. VITAMIN D [Concomitant]
     Indication: SUPPLEMENTATION THERAPY
  2. REBIF [Suspect]
     Indication: MULTIPLE SCLEROSIS
     Route: 058
     Dates: start: 20101030
  3. NAPROXEN (ALEVE) [Suspect]
     Indication: PREMEDICATION

REACTIONS (4)
  - DYSPEPSIA [None]
  - GASTRIC ULCER HAEMORRHAGE [None]
  - GASTRIC ULCER [None]
  - BURNING SENSATION [None]
